FAERS Safety Report 16291841 (Version 2)
Quarter: 2019Q2

REPORT INFORMATION
  Report Type: Report from Study
  Country: US (occurrence: US)
  Receive Date: 20190509
  Receipt Date: 20190531
  Transmission Date: 20190711
  Serious: Yes (Other)
  Sender: FDA-Public Use
  Company Number: US-JNJFOC-20190508466

PATIENT
  Sex: Male

DRUGS (1)
  1. IMBRUVICA [Suspect]
     Active Substance: IBRUTINIB
     Indication: LYMPHOCYTIC LEUKAEMIA
     Route: 048
     Dates: start: 20190418

REACTIONS (6)
  - Blood count abnormal [Unknown]
  - Pleural effusion [Unknown]
  - Dyspnoea [Unknown]
  - Sinus disorder [Unknown]
  - Oedema peripheral [Unknown]
  - Constipation [Unknown]
